FAERS Safety Report 15089086 (Version 1)
Quarter: 2018Q2

REPORT INFORMATION
  Report Type: Spontaneous
  Country: US (occurrence: US)
  Receive Date: 20180608
  Receipt Date: 20180608
  Transmission Date: 20180711
  Serious: No
  Sender: FDA-Public Use
  Company Number: None

PATIENT
  Age: 39 Year
  Sex: Male

DRUGS (1)
  1. TASIGNA [Suspect]
     Active Substance: NILOTINIB
     Route: 048
     Dates: start: 20170601, end: 20180608

REACTIONS (5)
  - Headache [None]
  - Glossodynia [None]
  - Anxiety [None]
  - Pain [None]
  - Neck pain [None]

NARRATIVE: CASE EVENT DATE: 20180528
